FAERS Safety Report 10571367 (Version 1)
Quarter: 2014Q4

REPORT INFORMATION
  Report Type: Spontaneous
  Country: DE (occurrence: DE)
  Receive Date: 20141107
  Receipt Date: 20141107
  Transmission Date: 20150529
  Serious: Yes (Hospitalization, Congenital Anomaly, Other)
  Sender: FDA-Public Use
  Company Number: DE-ABBVIE-14P-062-1304827-00

PATIENT
  Sex: Male

DRUGS (2)
  1. ERGENYL CHRONO [Suspect]
     Active Substance: VALPROIC ACID
     Indication: MATERNAL EXPOSURE TIMING UNSPECIFIED
     Route: 064
  2. KEPPRA [Suspect]
     Active Substance: LEVETIRACETAM
     Indication: MATERNAL EXPOSURE TIMING UNSPECIFIED
     Route: 064

REACTIONS (13)
  - Atrial septal defect [Unknown]
  - Dysmorphism [Unknown]
  - Hypertelorism of orbit [Unknown]
  - Small for dates baby [Unknown]
  - Neonatal respiratory distress syndrome [Unknown]
  - Congenital oral malformation [Unknown]
  - Congenital nose malformation [Unknown]
  - Foetal anticonvulsant syndrome [Unknown]
  - Patent ductus arteriosus [Unknown]
  - Prominent epicanthal folds [Unknown]
  - Congenital hand malformation [Unknown]
  - Adrenal haemorrhage [Unknown]
  - Foetal exposure during pregnancy [Unknown]

NARRATIVE: CASE EVENT DATE: 201308
